FAERS Safety Report 9191641 (Version 1)
Quarter: 2013Q1

REPORT INFORMATION
  Report Type: Spontaneous
  Country: CH (occurrence: CH)
  Receive Date: 20130326
  Receipt Date: 20130326
  Transmission Date: 20140127
  Serious: Yes (Death, Congenital Anomaly)
  Sender: FDA-Public Use
  Company Number: CH-MYLANLABS-2013S1005881

PATIENT
  Sex: 0

DRUGS (4)
  1. PRAVASTATIN [Suspect]
     Route: 064
  2. ENALAPRIL [Suspect]
     Route: 064
  3. AMLODIPINE [Suspect]
     Route: 064
  4. METHYLDOPA [Suspect]
     Route: 064

REACTIONS (3)
  - Foetal death [Fatal]
  - Urethral obstruction [Not Recovered/Not Resolved]
  - Exposure during pregnancy [Recovered/Resolved]
